FAERS Safety Report 5097486-9 (Version None)
Quarter: 2006Q3

REPORT INFORMATION
  Report Type: 
  Country: None (occurrence: None)
  Receive Date: 20060901
  Receipt Date: 20060815
  Transmission Date: 20061208
  Serious: Yes (Hospitalization)
  Sender: FDA-Public Use
  Company Number: US_0509122481

PATIENT
  Age: 55 Year
  Sex: Male
  Weight: 118.2 kg

DRUGS (2)
  1. ZYPREXA [Suspect]
     Indication: BIPOLAR DISORDER
     Dosage: 10 MG, ORAL
     Route: 048
     Dates: start: 19970716, end: 20040331
  2. ZIPRASIDONE HCL [Concomitant]

REACTIONS (7)
  - BLOOD CHOLESTEROL ABNORMAL [None]
  - BLOOD TRIGLYCERIDES INCREASED [None]
  - DIABETES MELLITUS NON-INSULIN-DEPENDENT [None]
  - METABOLIC DISORDER [None]
  - MYOCARDIAL INFARCTION [None]
  - OBESITY [None]
  - PNEUMONIA [None]
